FAERS Safety Report 6166875-3 (Version None)
Quarter: 2009Q2

REPORT INFORMATION
  Report Type: 
  Country: None (occurrence: None)
  Receive Date: 20090424
  Receipt Date: 20090417
  Transmission Date: 20091009
  Serious: Yes (Other)
  Sender: FDA-Public Use
  Company Number: A0780334A

PATIENT
  Sex: Male
  Weight: 15.5 kg

DRUGS (3)
  1. FLUTICASONE PROPIONATE [Suspect]
     Indication: HEADACHE
     Dosage: 1PUFF TWICE PER DAY
     Route: 065
     Dates: start: 20090331, end: 20090402
  2. COMBIRON [Concomitant]
     Dosage: 1TAB PER DAY
     Route: 065
  3. REDOXON [Concomitant]
     Dosage: 10ML PER DAY

REACTIONS (3)
  - AGGRESSION [None]
  - PSYCHOMOTOR HYPERACTIVITY [None]
  - SLEEP DISORDER [None]
